FAERS Safety Report 9752752 (Version 2)
Quarter: 2015Q2

REPORT INFORMATION
  Report Type: Report from Study
  Country: JP (occurrence: JP)
  Receive Date: 20131213
  Receipt Date: 20150401
  Transmission Date: 20150821
  Serious: Yes (Death, Hospitalization)
  Sender: FDA-Public Use
  Company Number: JP-SA-2013SA128840

PATIENT
  Age: 20 Month
  Sex: Male
  Weight: 8.8 kg

DRUGS (28)
  1. ZOSYN [Concomitant]
     Active Substance: PIPERACILLIN SODIUM\TAZOBACTAM SODIUM
     Indication: INFECTION PROPHYLAXIS
     Dates: start: 20130718, end: 20130807
  2. KETALAR [Concomitant]
     Active Substance: KETAMINE HYDROCHLORIDE
     Indication: PAIN
     Dates: start: 20130716, end: 20130716
  3. DORMICUM [Concomitant]
     Active Substance: MIDAZOLAM\MIDAZOLAM HYDROCHLORIDE
     Indication: SEDATION
     Dates: start: 20130716, end: 20130716
  4. TAGAMET [Concomitant]
     Active Substance: CIMETIDINE
     Indication: PROPHYLAXIS AGAINST GASTROINTESTINAL ULCER
     Dates: start: 20130701, end: 20130807
  5. THYMOGLOBULINE [Suspect]
     Active Substance: LAPINE T-LYMPHOCYTE IMMUNE GLOBULIN
     Indication: BONE MARROW CONDITIONING REGIMEN
     Route: 042
     Dates: start: 20130701, end: 20130702
  6. ORGARAN [Concomitant]
     Active Substance: DANAPAROID SODIUM
     Indication: PROPHYLAXIS
     Dates: start: 20130620, end: 20130806
  7. KYTRIL [Concomitant]
     Active Substance: GRANISETRON HYDROCHLORIDE
     Indication: NAUSEA
     Dates: start: 20130701, end: 20130731
  8. ANTITHROMBIN III [Concomitant]
     Active Substance: ANTITHROMBIN III HUMAN
     Indication: PROPHYLAXIS
     Dates: start: 20130702, end: 20130804
  9. EPADEL [Concomitant]
     Active Substance: ICOSAPENT
     Indication: PROPHYLAXIS
     Dates: start: 20130701, end: 20130806
  10. PREDONINE [Concomitant]
     Active Substance: PREDNISOLONE\PREDNISOLONE ACETATE\PREDNISOLONE SODIUM SUCCINATE
     Indication: PROPHYLAXIS AGAINST GRAFT VERSUS HOST DISEASE
     Dates: start: 20130705, end: 20130716
  11. PROPOFOL. [Concomitant]
     Active Substance: PROPOFOL
     Indication: PROPHYLAXIS
     Dates: start: 20130701, end: 20130703
  12. PROGRAF [Concomitant]
     Active Substance: TACROLIMUS\TACROLIMUS ANHYDROUS
     Indication: PROPHYLAXIS AGAINST GRAFT VERSUS HOST DISEASE
     Dates: start: 20130703, end: 20130718
  13. FUNGUARD [Concomitant]
     Active Substance: MICAFUNGIN SODIUM
     Indication: INFECTION PROPHYLAXIS
     Dates: start: 20130706, end: 20130806
  14. UROMITEXAN [Concomitant]
     Active Substance: MESNA
     Indication: PROPHYLAXIS
     Dates: start: 20130719, end: 20130719
  15. URSO [Concomitant]
     Active Substance: URSODIOL
     Indication: PROPHYLAXIS
     Dates: start: 20130701, end: 20130806
  16. AMIKACIN SULFATE. [Concomitant]
     Active Substance: AMIKACIN SULFATE
     Indication: INFECTION PROPHYLAXIS
     Dates: start: 20130701, end: 20130806
  17. SANGLOPOR [Concomitant]
     Active Substance: HUMAN IMMUNOGLOBULIN G
     Indication: INFECTION PROPHYLAXIS
     Dates: start: 20130705, end: 20130801
  18. ATROPINE [Concomitant]
     Active Substance: ATROPINE
     Indication: PROPHYLAXIS
     Dates: start: 20130716, end: 20130716
  19. SOLU-MEDROL [Concomitant]
     Active Substance: METHYLPREDNISOLONE SODIUM SUCCINATE
     Indication: PROPHYLAXIS
     Dates: start: 20130701, end: 20130705
  20. FLUDARA [Suspect]
     Active Substance: FLUDARABINE PHOSPHATE
     Indication: ACUTE MYELOID LEUKAEMIA
     Route: 065
     Dates: start: 20130621, end: 20130731
  21. SOLU-CORTEF [Concomitant]
     Active Substance: HYDROCORTISONE SODIUM SUCCINATE
     Indication: PROPHYLAXIS
     Dates: start: 20130704, end: 20130802
  22. SANDIMMUNE [Concomitant]
     Active Substance: CYCLOSPORINE
     Indication: PROPHYLAXIS AGAINST GRAFT VERSUS HOST DISEASE
     Dates: start: 20130801, end: 20130806
  23. ATARAX-P [Concomitant]
     Active Substance: HYDROXYZINE HYDROCHLORIDE
     Indication: ALLERGY PROPHYLAXIS
     Dates: start: 20130705, end: 20130712
  24. JUVELA [Concomitant]
     Active Substance: .ALPHA.-TOCOPHEROL\RETINOL
     Indication: PROPHYLAXIS
     Dates: start: 20130701, end: 20130806
  25. BAKTAR [Concomitant]
     Active Substance: SULFAMETHOXAZOLE\TRIMETHOPRIM
     Indication: INFECTION PROPHYLAXIS
     Dates: start: 20130701, end: 20130806
  26. ALKERAN [Suspect]
     Active Substance: MELPHALAN
     Indication: ACUTE MYELOID LEUKAEMIA
     Route: 065
     Dates: start: 20130621, end: 20130731
  27. FENTANYL. [Concomitant]
     Active Substance: FENTANYL
     Indication: ACUTE MYELOID LEUKAEMIA
     Dates: start: 20130701, end: 20130807
  28. ACICLOVIR [Concomitant]
     Active Substance: ACYCLOVIR
     Indication: INFECTION PROPHYLAXIS
     Dates: start: 20130704, end: 20130719

REACTIONS (6)
  - Pyrexia [Recovering/Resolving]
  - Cardio-respiratory arrest [Fatal]
  - Oedema [Not Recovered/Not Resolved]
  - Acute myeloid leukaemia [Fatal]
  - Gastrointestinal haemorrhage [Not Recovered/Not Resolved]
  - Diarrhoea [Not Recovered/Not Resolved]

NARRATIVE: CASE EVENT DATE: 20130630
